FAERS Safety Report 9937881 (Version 2)
Quarter: 2014Q1

REPORT INFORMATION
  Report Type: Spontaneous
  Country: US (occurrence: US)
  Receive Date: 20140303
  Receipt Date: 20140325
  Transmission Date: 20141002
  Serious: No
  Sender: FDA-Public Use
  Company Number: US-BIOGENIDEC-2014BI016766

PATIENT
  Age: 59 Year
  Sex: Male

DRUGS (2)
  1. TECFIDERA [Suspect]
     Indication: MULTIPLE SCLEROSIS
     Route: 048
     Dates: start: 20140219, end: 20140225
  2. TECFIDERA [Suspect]
     Indication: MULTIPLE SCLEROSIS
     Route: 048
     Dates: start: 20140226, end: 20140305

REACTIONS (6)
  - Headache [Unknown]
  - Flushing [Unknown]
  - Nausea [Unknown]
  - Abdominal pain [Unknown]
  - Diarrhoea [Unknown]
  - Dyspepsia [Unknown]
